FAERS Safety Report 20849239 (Version 1)
Quarter: 2022Q2

REPORT INFORMATION
  Report Type: Spontaneous
  Country: US (occurrence: US)
  Receive Date: 20220519
  Receipt Date: 20220519
  Transmission Date: 20220721
  Serious: Yes (Other)
  Sender: FDA-Public Use
  Company Number: US-TAKEDA-2022TUS032397

PATIENT
  Sex: Female

DRUGS (1)
  1. MOTEGRITY [Suspect]
     Active Substance: PRUCALOPRIDE SUCCINATE
     Indication: Gastrointestinal disorder
     Dosage: 2 MILLIGRAM, QD
     Route: 065

REACTIONS (5)
  - Suicidal ideation [Unknown]
  - Fear [Unknown]
  - Therapy interrupted [Not Recovered/Not Resolved]
  - Depression [Unknown]
  - Product availability issue [Not Recovered/Not Resolved]
